FAERS Safety Report 17329529 (Version 2)
Quarter: 2020Q1

REPORT INFORMATION
  Report Type: Spontaneous
  Country: US (occurrence: US)
  Receive Date: 20200127
  Receipt Date: 20200218
  Transmission Date: 20200409
  Serious: Yes (Hospitalization)
  Sender: FDA-Public Use
  Company Number: US-SA-2020SA018256

PATIENT
  Age: 69 Year
  Sex: Male

DRUGS (12)
  1. HYDRALAZINE [Concomitant]
     Active Substance: HYDRALAZINE HYDROCHLORIDE
     Dosage: 25 MG, TID
  2. HEPARIN [Concomitant]
     Active Substance: HEPARIN SODIUM
     Route: 042
  3. LANTUS [Concomitant]
     Active Substance: INSULIN GLARGINE
     Dosage: 21 U, Q12H
  4. BUMEX [Concomitant]
     Active Substance: BUMETANIDE
     Dosage: 0.5 MG, QOD
  5. KENALOG [Concomitant]
     Active Substance: TRIAMCINOLONE ACETONIDE
  6. PRALUENT [Suspect]
     Active Substance: ALIROCUMAB
     Indication: HYPERCHOLESTEROLAEMIA
  7. COUMADIN [Concomitant]
     Active Substance: WARFARIN SODIUM
     Dosage: 5 MG, QD
  8. HM [Concomitant]
  9. DIGOXIN. [Concomitant]
     Active Substance: DIGOXIN
  10. LISINOPRIL. [Concomitant]
     Active Substance: LISINOPRIL
  11. COREG [Concomitant]
     Active Substance: CARVEDILOL
  12. LISPRO INSULIN [Concomitant]
     Active Substance: INSULIN LISPRO
     Dosage: 14 U

REACTIONS (4)
  - Condition aggravated [Recovered/Resolved]
  - Gait disturbance [Recovered/Resolved]
  - Back pain [Recovered/Resolved]
  - Asthenia [Recovered/Resolved]

NARRATIVE: CASE EVENT DATE: 20191218
